FAERS Safety Report 17295613 (Version 1)
Quarter: 2020Q1

REPORT INFORMATION
  Report Type: Spontaneous
  Country: US (occurrence: US)
  Receive Date: 20200121
  Receipt Date: 20200121
  Transmission Date: 20200409
  Serious: Yes (Death, Hospitalization)
  Sender: FDA-Public Use
  Company Number: US-MYLANLABS-2020M1005844

PATIENT
  Age: 40 Year
  Sex: Female

DRUGS (1)
  1. MAGNESIUM SULFATE. [Suspect]
     Active Substance: MAGNESIUM SULFATE
     Indication: PRODUCT USED FOR UNKNOWN INDICATION
     Dosage: DRANK A BOTTLE (UNKNOWN AMOUNT)
     Route: 048

REACTIONS (6)
  - Toxicity to various agents [Fatal]
  - Brain injury [Fatal]
  - Cardiac arrest [Fatal]
  - Overdose [Fatal]
  - Intentional product misuse [Fatal]
  - Seizure [Fatal]
